FAERS Safety Report 21387271 (Version 1)
Quarter: 2022Q3

REPORT INFORMATION
  Report Type: Spontaneous
  Country: US (occurrence: US)
  Receive Date: 20220928
  Receipt Date: 20220928
  Transmission Date: 20221027
  Serious: No
  Sender: FDA-Public Use
  Company Number: US-BRISTOL-MYERS SQUIBB COMPANY-2022-113198

PATIENT
  Age: 40 Year
  Sex: Female

DRUGS (2)
  1. ORENCIA [Suspect]
     Active Substance: ABATACEPT
     Indication: Rheumatoid arthritis
     Route: 058
     Dates: start: 20220202
  2. ORENCIA [Suspect]
     Active Substance: ABATACEPT
     Indication: Pustular psoriasis

REACTIONS (3)
  - Pruritus [Unknown]
  - Burning sensation [Unknown]
  - Erythema [Unknown]
